FAERS Safety Report 9186772 (Version 2)
Quarter: 2012Q4

REPORT INFORMATION
  Report Type: 
  Country: BR (occurrence: BR)
  Receive Date: 20121102
  Receipt Date: 20121102
  Transmission Date: 20130627
  Serious: Yes (Other)
  Sender: FDA-Public Use
  Company Number: BR-JNJFOC-20121013570

PATIENT
  Age: 59 None
  Sex: Female
  Weight: 47 kg

DRUGS (7)
  1. REMICADE [Suspect]
     Indication: RHEUMATOID ARTHRITIS
     Dosage: Frequency: more than 8 weeks
     Route: 042
  2. REMICADE [Suspect]
     Indication: RHEUMATOID ARTHRITIS
     Route: 042
     Dates: start: 201209
  3. REMICADE [Suspect]
     Indication: RHEUMATOID ARTHRITIS
     Route: 042
     Dates: start: 201101
  4. PARIET [Concomitant]
     Indication: GASTRIC ULCER
     Route: 048
     Dates: start: 20100524
  5. AMLODIPINE [Concomitant]
     Indication: HYPERTENSION
     Route: 065
     Dates: start: 201202
  6. PURAN T4 [Concomitant]
     Indication: THYROID DISORDER
     Route: 065
     Dates: start: 2002
  7. LOSARTAN [Concomitant]
     Indication: HYPERTENSION
     Route: 065
     Dates: start: 201202

REACTIONS (4)
  - Arthralgia [Recovered/Resolved]
  - Pain in extremity [Recovering/Resolving]
  - Surgery [Recovered/Resolved]
  - Hand deformity [Not Recovered/Not Resolved]
